FAERS Safety Report 26208763 (Version 1)
Quarter: 2025Q4

REPORT INFORMATION
  Report Type: Spontaneous
  Country: US (occurrence: None)
  Receive Date: 20251228
  Receipt Date: 20251228
  Transmission Date: 20260117
  Serious: Yes (Other)
  Sender: FDA-CTU
  Company Number: None

PATIENT
  Age: 68 Year
  Sex: Female
  Weight: 72 kg

DRUGS (3)
  1. HYDROCHLOROTHIAZIDE [Suspect]
     Active Substance: HYDROCHLOROTHIAZIDE
     Indication: Hypertension
     Dosage: OTHER QUANTITY : 30 TABLET(S);
     Route: 048
     Dates: start: 20251204, end: 20251221
  2. VITAMINS [Concomitant]
     Active Substance: VITAMINS
  3. ZYRTEC [Concomitant]
     Active Substance: CETIRIZINE HYDROCHLORIDE

REACTIONS (7)
  - Palpitations [None]
  - Fatigue [None]
  - Blood potassium decreased [None]
  - Blood chloride abnormal [None]
  - Anion gap abnormal [None]
  - Carbon dioxide abnormal [None]
  - Toxicity to various agents [None]

NARRATIVE: CASE EVENT DATE: 20251221
